FAERS Safety Report 7506243-2 (Version None)
Quarter: 2011Q2

REPORT INFORMATION
  Report Type: 
  Country: None (occurrence: None)
  Receive Date: 20110526
  Receipt Date: 20100528
  Transmission Date: 20111010
  Serious: Yes (Hospitalization, Other)
  Sender: FDA-Public Use
  Company Number: PHHY2010MX19887

PATIENT
  Sex: Female

DRUGS (6)
  1. TRILEPTAL [Suspect]
     Indication: EPILEPSY
     Dosage: 1 DF, QD
     Route: 048
     Dates: start: 20090301, end: 20100330
  2. EXFORGE [Suspect]
     Indication: HYPERTENSION
     Dosage: 0.5 DF (160/10 MG)
     Dates: start: 20090101, end: 20100330
  3. EXFORGE [Suspect]
     Dosage: UNK
  4. TRILEPTAL [Suspect]
     Dosage: UNK
     Route: 048
  5. EXELON [Suspect]
     Dosage: 1 PATCH, 1 DF, DAILY
     Route: 062
  6. EXELON [Suspect]
     Indication: SENILE DEMENTIA
     Dosage: 1 PATCH, 1 DF, DAILY
     Route: 062
     Dates: end: 20100330

REACTIONS (5)
  - WOUND INFECTION [None]
  - FALL [None]
  - LUNG DISORDER [None]
  - HIP FRACTURE [None]
  - BLOOD PRESSURE INCREASED [None]
